FAERS Safety Report 10261340 (Version 1)
Quarter: 2014Q2

REPORT INFORMATION
  Report Type: Spontaneous
  Country: US (occurrence: US)
  Receive Date: 20140626
  Receipt Date: 20140626
  Transmission Date: 20141212
  Serious: No
  Sender: FDA-Public Use
  Company Number: US-009507513-1406USA010862

PATIENT
  Sex: Female

DRUGS (3)
  1. PROVENTIL [Suspect]
     Indication: WHEEZING
     Dosage: 2 PUFFS TWICE DAILY FOR FIVE DAYS
     Route: 055
     Dates: start: 20140527
  2. PROVENTIL [Suspect]
     Indication: COUGH
  3. LEXAPRO [Concomitant]

REACTIONS (3)
  - Dyspnoea [Unknown]
  - Drug dose omission [Unknown]
  - Product quality issue [Unknown]
